FAERS Safety Report 6026675-1 (Version None)
Quarter: 2008Q4

REPORT INFORMATION
  Report Type: 
  Country: None (occurrence: None)
  Receive Date: 20081231
  Receipt Date: 20081216
  Transmission Date: 20090506
  Serious: Yes (Hospitalization)
  Sender: FDA-Public Use
  Company Number: 2008MB000114

PATIENT
  Age: 35 Year
  Sex: Female

DRUGS (6)
  1. CEPHALEXIN [Suspect]
     Indication: DRUG USE FOR UNKNOWN INDICATION
     Dosage: 500 MG; QID; PO, 500 MG; QID; PO
     Route: 048
  2. PRENATAL VITAMINS /01549301/ (PRENATAL VITAMINS /01549301/) [Suspect]
     Indication: DRUG USE FOR UNKNOWN INDICATION
  3. URSODIOL [Suspect]
     Indication: DRUG USE FOR UNKNOWN INDICATION
     Dosage: 300 MG; BID; PO
     Route: 048
  4. INDOMETHACIN [Suspect]
     Indication: DRUG USE FOR UNKNOWN INDICATION
     Dosage: 50 MG, Q6H; PO
     Route: 048
  5. CEFAZOLIN [Suspect]
     Indication: DRUG USE FOR UNKNOWN INDICATION
     Dosage: 2 GM; X1; IV, 1 GM; Q6H; IV
     Route: 042
  6. AMPICILLIN [Suspect]
     Indication: PREMATURE LABOUR
     Dosage: 2 GM; Q4H; IV
     Route: 042

REACTIONS (6)
  - CLOSTRIDIUM DIFFICILE COLITIS [None]
  - CLOSTRIDIUM DIFFICILE TOXIN TEST POSITIVE [None]
  - DRUG EXPOSURE DURING PREGNANCY [None]
  - GALLBLADDER ENLARGEMENT [None]
  - PREMATURE LABOUR [None]
  - PREMATURE RUPTURE OF MEMBRANES [None]
